FAERS Safety Report 25604366 (Version 4)
Quarter: 2025Q3

REPORT INFORMATION
  Report Type: Spontaneous
  Country: EU (occurrence: EU)
  Receive Date: 20250725
  Receipt Date: 20250912
  Transmission Date: 20251021
  Serious: Yes (Life-Threatening, Hospitalization, Other)
  Sender: AUROBINDO
  Company Number: EU-MYLANLABS-2025M1057825

PATIENT
  Age: 71 Year
  Sex: Female

DRUGS (6)
  1. HYDROCORTISONE [Suspect]
     Active Substance: HYDROCORTISONE
     Indication: Product used for unknown indication
     Route: 042
  2. BUDESONIDE\FORMOTEROL [Suspect]
     Active Substance: BUDESONIDE\FORMOTEROL
     Indication: Product used for unknown indication
     Route: 065
  3. CLEMASTINE [Suspect]
     Active Substance: CLEMASTINE
     Indication: Product used for unknown indication
     Route: 042
  4. EPINEPHRINE [Suspect]
     Active Substance: EPINEPHRINE
     Indication: Anaphylactic reaction
     Route: 030
  5. EPINEPHRINE [Suspect]
     Active Substance: EPINEPHRINE
     Route: 030
  6. EPINEPHRINE [Suspect]
     Active Substance: EPINEPHRINE
     Route: 030

REACTIONS (2)
  - Kounis syndrome [Unknown]
  - Drug ineffective [Unknown]
